FAERS Safety Report 21255192 (Version 2)
Quarter: 2022Q3

REPORT INFORMATION
  Report Type: Spontaneous
  Country: GR (occurrence: GR)
  Receive Date: 20220825
  Receipt Date: 20220906
  Transmission Date: 20221027
  Serious: Yes (Life-Threatening, Hospitalization)
  Sender: FDA-Public Use
  Company Number: GR-TEVA-2022-GR-2067060

PATIENT
  Age: 60 Year
  Sex: Male

DRUGS (9)
  1. BORTEZOMIB [Suspect]
     Active Substance: BORTEZOMIB
     Indication: Plasma cell myeloma
     Dosage: ON DAYS 1, 4, 8, AND 11
     Route: 058
     Dates: start: 202102
  2. LENALIDOMIDE [Suspect]
     Active Substance: LENALIDOMIDE
     Indication: Plasma cell myeloma
     Route: 065
  3. VENETOCLAX [Suspect]
     Active Substance: VENETOCLAX
     Indication: Plasma cell myeloma
     Dosage: 100 MILLIGRAM DAILY; INITIAL DOSE
     Route: 048
     Dates: start: 202102
  4. VENETOCLAX [Suspect]
     Active Substance: VENETOCLAX
     Dosage: 400 MILLIGRAM DAILY; DOSE ESCALATION TO BY DAY 4
     Route: 048
     Dates: start: 202102
  5. DEXAMETHASONE [Suspect]
     Active Substance: DEXAMETHASONE
     Indication: Plasma cell myeloma
     Dosage: ON DAYS 1, 2, 4, 5, 8, 9, 11, AND 12 (FOR BVD)
     Route: 048
     Dates: start: 202102
  6. CARFILZOMIB [Suspect]
     Active Substance: CARFILZOMIB
     Indication: Plasma cell myeloma
     Route: 065
  7. CALCIUM GLUCONATE [Suspect]
     Active Substance: CALCIUM GLUCONATE
     Indication: Hypocalcaemia
     Dosage: 5 AMPOULES
     Route: 042
     Dates: start: 202102
  8. CALCIUM [Suspect]
     Active Substance: CALCIUM
     Indication: Hypocalcaemia
     Dosage: 4 GRAM DAILY;
     Route: 048
     Dates: start: 202102
  9. ALFACALCIDOL [Suspect]
     Active Substance: ALFACALCIDOL
     Indication: Hypocalcaemia
     Route: 065
     Dates: start: 202102

REACTIONS (3)
  - Hypocalcaemia [Recovered/Resolved]
  - Drug ineffective [Unknown]
  - Hypocalcaemic seizure [Unknown]

NARRATIVE: CASE EVENT DATE: 20210101
